FAERS Safety Report 9377881 (Version 1)
Quarter: 2013Q2

REPORT INFORMATION
  Report Type: Spontaneous
  Country: US (occurrence: None)
  Receive Date: 20130625
  Receipt Date: 20130625
  Transmission Date: 20140414
  Serious: Yes (Hospitalization)
  Sender: FDA-Public Use
  Company Number: USA/USA/13/0030085

PATIENT
  Age: 19 Year
  Sex: Female

DRUGS (1)
  1. AMLODIPINE [Suspect]
     Indication: PRODUCT USED FOR UNKNOWN INDICATION
     Dosage: 20 DOSAGE FORMS, ONCE, ORAL
     Route: 048

REACTIONS (6)
  - Hypotension [None]
  - Sinus tachycardia [None]
  - Hyperglycaemia [None]
  - Angioedema [None]
  - Metabolic acidosis [None]
  - Intentional overdose [None]
